FAERS Safety Report 24304205 (Version 1)
Quarter: 2024Q3

REPORT INFORMATION
  Report Type: Spontaneous
  Country: LB (occurrence: LB)
  Receive Date: 20240910
  Receipt Date: 20240910
  Transmission Date: 20241017
  Serious: Yes (Other)
  Sender: PFIZER
  Company Number: LB-PFIZER INC-PV202400117317

PATIENT
  Age: 19 Year
  Sex: Female

DRUGS (8)
  1. SOLU-MEDROL [Suspect]
     Active Substance: METHYLPREDNISOLONE SODIUM SUCCINATE
     Indication: Neuromyelitis optica spectrum disorder
     Dosage: UNK
     Route: 042
  2. SOLU-MEDROL [Suspect]
     Active Substance: METHYLPREDNISOLONE SODIUM SUCCINATE
     Dosage: 1 G
     Route: 040
  3. ENOXAPARIN SODIUM [Concomitant]
     Active Substance: ENOXAPARIN SODIUM
     Indication: Neuromyelitis optica spectrum disorder
     Dosage: 20 MG
     Route: 058
  4. GLYCERIN [Concomitant]
     Active Substance: GLYCERIN
     Indication: Neuromyelitis optica spectrum disorder
     Dosage: UNK
  5. OMEPRAZOLE [Concomitant]
     Active Substance: OMEPRAZOLE
     Indication: Neuromyelitis optica spectrum disorder
     Dosage: 40 MG
     Route: 042
  6. ACETAMINOPHEN [Concomitant]
     Active Substance: ACETAMINOPHEN
     Indication: Neuromyelitis optica spectrum disorder
     Dosage: 1 G, 4X/DAY
     Route: 042
  7. PREDNISONE [Concomitant]
     Active Substance: PREDNISONE
     Indication: Neuromyelitis optica spectrum disorder
     Dosage: UNK
     Route: 048
  8. RITUXIMAB [Concomitant]
     Active Substance: RITUXIMAB
     Indication: Neuromyelitis optica spectrum disorder
     Dosage: 1000 MG, TWICE 14 DAYS APART

REACTIONS (4)
  - Treatment noncompliance [Unknown]
  - Neuromyelitis optica spectrum disorder [Unknown]
  - Off label use [Unknown]
  - Drug effective for unapproved indication [Unknown]
